FAERS Safety Report 8366384-7 (Version None)
Quarter: 2012Q2

REPORT INFORMATION
  Report Type: 
  Country: None (occurrence: None)
  Receive Date: 20120517
  Receipt Date: 20120510
  Transmission Date: 20120825
  Serious: Yes (Other)
  Sender: FDA-Public Use
  Company Number: CN-PFIZER INC-2012116263

PATIENT
  Sex: Female

DRUGS (1)
  1. HEMABATE [Suspect]
     Indication: UTERINE HYPOTONUS
     Dosage: 250 UG, UNK
     Dates: start: 20120510, end: 20120510

REACTIONS (6)
  - HYPERSENSITIVITY [None]
  - TACHYPNOEA [None]
  - BLOOD PRESSURE INCREASED [None]
  - RASH [None]
  - HEADACHE [None]
  - DYSPNOEA [None]
